FAERS Safety Report 5773169-4 (Version None)
Quarter: 2008Q2

REPORT INFORMATION
  Report Type: 
  Country: None (occurrence: None)
  Receive Date: 20080616
  Receipt Date: 20080312
  Transmission Date: 20081010
  Serious: No
  Sender: FDA-Public Use
  Company Number: US-BAYER-200712800BCC

PATIENT
  Age: 80 Year
  Sex: Female
  Weight: 59 kg

DRUGS (7)
  1. ALEVE [Suspect]
     Indication: ARTHRALGIA
     Dosage: TOTAL DAILY DOSE: 440 MG  UNIT DOSE: 220 MG
     Route: 048
     Dates: start: 20070101
  2. ASPIRIN [Suspect]
     Indication: ARTHRALGIA
     Dosage: TOTAL DAILY DOSE: 81 MG  UNIT DOSE: 81 MG
     Route: 048
     Dates: start: 20070101
  3. PREVACID [Concomitant]
  4. AVALIDE [Concomitant]
  5. METOPROLOL SUCCINATE [Concomitant]
  6. FOLIC ACID [Concomitant]
  7. VITAMIN TAB [Concomitant]

REACTIONS (1)
  - INSOMNIA [None]
